FAERS Safety Report 22900252 (Version 3)
Quarter: 2024Q1

REPORT INFORMATION
  Report Type: Report from Study
  Country: US (occurrence: US)
  Receive Date: 20230904
  Receipt Date: 20240129
  Transmission Date: 20240410
  Serious: Yes (Hospitalization, Other)
  Sender: FDA-Public Use
  Company Number: US-ACADIA PHARMACEUTICALS INC.-ACA-2023-TRF-003437

PATIENT
  Age: 12 Year
  Sex: Female

DRUGS (9)
  1. DAYBUE [Suspect]
     Active Substance: TROFINETIDE
     Indication: Rett syndrome
     Dosage: 60 MILLILITER, BID
     Route: 048
     Dates: start: 20230803
  2. LAMICTAL [Concomitant]
     Active Substance: LAMOTRIGINE
  3. GUANFACINE [Concomitant]
     Active Substance: GUANFACINE
     Dosage: UNK
     Dates: start: 20221022
  4. VITAMINS NOS [Concomitant]
     Active Substance: VITAMINS
  5. OYSCO D [CALCIUM;VITAMIN D NOS] [Concomitant]
  6. VALTOCO [Concomitant]
     Active Substance: DIAZEPAM
  7. LAMOTRIGINE [Concomitant]
     Active Substance: LAMOTRIGINE
     Dosage: UNK
     Dates: start: 20231207
  8. KEPPRA [Concomitant]
     Active Substance: LEVETIRACETAM
     Dosage: UNK
     Dates: start: 20231207
  9. EPIDIOLEX [Concomitant]
     Active Substance: CANNABIDIOL
     Dosage: UNK
     Dates: start: 20231207

REACTIONS (3)
  - Seizure [Not Recovered/Not Resolved]
  - Product use complaint [Not Recovered/Not Resolved]
  - Vomiting projectile [Recovered/Resolved]

NARRATIVE: CASE EVENT DATE: 20230808
